FAERS Safety Report 4926323-5 (Version None)
Quarter: 2006Q1

REPORT INFORMATION
  Report Type: 
  Country: None (occurrence: None)
  Receive Date: 20060228
  Receipt Date: 20051028
  Transmission Date: 20060701
  Serious: No
  Sender: FDA-Public Use
  Company Number: US-GLAXOSMITHKLINE-A0580108A

PATIENT
  Age: 21 Year
  Sex: Female

DRUGS (3)
  1. LAMICTAL [Suspect]
     Indication: BIPOLAR DISORDER
     Dosage: 200MG PER DAY
     Route: 048
     Dates: start: 20041101
  2. PROZAC [Concomitant]
  3. ADDERALL 10 [Concomitant]

REACTIONS (5)
  - DIZZINESS [None]
  - HEADACHE [None]
  - HEART RATE DECREASED [None]
  - HYPOAESTHESIA ORAL [None]
  - OVERDOSE [None]
